FAERS Safety Report 5418761-1 (Version None)
Quarter: 2007Q3

REPORT INFORMATION
  Report Type: 
  Country: None (occurrence: None)
  Receive Date: 20070817
  Receipt Date: 20070806
  Transmission Date: 20080115
  Serious: Yes (Other)
  Sender: FDA-Public Use
  Company Number: EG-PFIZER INC-2007065414

PATIENT
  Age: 45 Year
  Sex: Female

DRUGS (2)
  1. CEFOBID IV [Suspect]
     Indication: BRONCHITIS
     Route: 030
     Dates: start: 20070501, end: 20070501
  2. SYMBICORT [Concomitant]
     Route: 048

REACTIONS (4)
  - BLOOD PRESSURE DECREASED [None]
  - HYPERHIDROSIS [None]
  - RASH [None]
  - URTICARIA [None]
